FAERS Safety Report 5157437-5 (Version None)
Quarter: 2006Q4

REPORT INFORMATION
  Report Type: 
  Country: None (occurrence: None)
  Receive Date: 20061127
  Receipt Date: 20061114
  Transmission Date: 20070319
  Serious: Yes (Disabling, Congenital Anomaly)
  Sender: FDA-Public Use
  Company Number: FR-ELI_LILLY_AND_COMPANY-FR200611002820

PATIENT
  Age: 1 Day
  Sex: Female
  Weight: 3.21 kg

DRUGS (1)
  1. PROZAC [Suspect]
     Route: 064
     Dates: end: 20060308

REACTIONS (2)
  - DRUG EXPOSURE DURING PREGNANCY [None]
  - VENTRICULAR SEPTAL DEFECT [None]
